FAERS Safety Report 5924188-6 (Version None)
Quarter: 2008Q4

REPORT INFORMATION
  Report Type: 
  Country: None (occurrence: None)
  Receive Date: 20081020
  Receipt Date: 20081008
  Transmission Date: 20090506
  Serious: Yes (Hospitalization)
  Sender: FDA-Public Use
  Company Number: US-ELI_LILLY_AND_COMPANY-US200810002561

PATIENT
  Sex: Male

DRUGS (6)
  1. FORTEO [Suspect]
     Indication: OSTEOPOROSIS
     Dosage: UNK, UNK
     Dates: start: 20070401
  2. PLAVIX [Concomitant]
     Dates: end: 20081007
  3. CARDIZEM CD [Concomitant]
     Dosage: 240 MG, UNK
  4. ZOCOR [Concomitant]
     Dosage: 40 MG, UNK
  5. ASPIRIN [Concomitant]
     Dosage: BABY ASPIRIN
  6. KLOR-CON [Concomitant]
     Dosage: 10 MEQ, UNK

REACTIONS (2)
  - ASTHMA [None]
  - CHRONIC OBSTRUCTIVE PULMONARY DISEASE [None]
